FAERS Safety Report 23650094 (Version 1)
Quarter: 2024Q1

REPORT INFORMATION
  Report Type: Spontaneous
  Country: US (occurrence: None)
  Receive Date: 20240319
  Receipt Date: 20240319
  Transmission Date: 20240409
  Serious: No
  Sender: FDA-Public Use
  Company Number: US-ROCHE-3495931

PATIENT
  Sex: Male

DRUGS (20)
  1. ERIVEDGE [Suspect]
     Active Substance: VISMODEGIB
     Indication: Basal cell carcinoma
     Route: 048
  2. DORZOLAMIDE [Concomitant]
     Active Substance: DORZOLAMIDE
  3. POTASSIUM CHLORIDE [Concomitant]
     Active Substance: POTASSIUM CHLORIDE
  4. PROPRANOLOL HYDROCHLORIDE [Concomitant]
     Active Substance: PROPRANOLOL HYDROCHLORIDE
  5. VASCEPA [Concomitant]
     Active Substance: ICOSAPENT ETHYL
  6. ALLOPURINOL [Concomitant]
     Active Substance: ALLOPURINOL
  7. AMLODIPINE BESYLATE [Concomitant]
     Active Substance: AMLODIPINE BESYLATE
  8. AZOPT [Concomitant]
     Active Substance: BRINZOLAMIDE
  9. CLONAZEPAM [Concomitant]
     Active Substance: CLONAZEPAM
  10. ESOMEPRAZOLE [Concomitant]
     Active Substance: ESOMEPRAZOLE
  11. FERROUS SULFATE [Concomitant]
     Active Substance: FERROUS SULFATE
  12. HYDRALAZINE HCL [Concomitant]
     Active Substance: HYDRALAZINE HYDROCHLORIDE
  13. HYDROCHLOROTHIAZIDE [Concomitant]
     Active Substance: HYDROCHLOROTHIAZIDE
  14. LISINOPRIL [Concomitant]
     Active Substance: LISINOPRIL
  15. PRIMIDONE [Concomitant]
     Active Substance: PRIMIDONE
  16. PROPRANOLOL HYDROCHLORIDE [Concomitant]
     Active Substance: PROPRANOLOL HYDROCHLORIDE
  17. SIMVASTATIN [Concomitant]
     Active Substance: SIMVASTATIN
  18. TOUJEO [Concomitant]
     Active Substance: INSULIN GLARGINE
  19. TRULICITY [Concomitant]
     Active Substance: DULAGLUTIDE
  20. XARELTO [Concomitant]
     Active Substance: RIVAROXABAN

REACTIONS (1)
  - Glaucoma [Unknown]
